FAERS Safety Report 7635576-4 (Version None)
Quarter: 2011Q3

REPORT INFORMATION
  Report Type: 
  Country: None (occurrence: None)
  Receive Date: 20110726
  Receipt Date: 20110718
  Transmission Date: 20111222
  Serious: Yes (Other)
  Sender: FDA-Public Use
  Company Number: GB-TEVA-291734ISR

PATIENT

DRUGS (1)
  1. METFORMIN HCL [Suspect]
     Route: 048

REACTIONS (8)
  - CHILLS [None]
  - DIARRHOEA [None]
  - DYSPNOEA [None]
  - CHEST DISCOMFORT [None]
  - FATIGUE [None]
  - PHARYNGEAL OEDEMA [None]
  - ASTHMA [None]
  - PYREXIA [None]
